FAERS Safety Report 12132850 (Version 1)
Quarter: 2016Q1

REPORT INFORMATION
  Report Type: Spontaneous
  Country: US (occurrence: None)
  Receive Date: 20160229
  Receipt Date: 20160229
  Transmission Date: 20160526
  Serious: Yes (Other)
  Sender: FDA-Public Use
  Company Number: None

PATIENT
  Age: 51 Year
  Sex: Female
  Weight: 83.92 kg

DRUGS (4)
  1. COMBIGAN [Concomitant]
     Active Substance: BRIMONIDINE TARTRATE\TIMOLOL MALEATE
  2. PRESERVISION EYE VITAMINS [Concomitant]
  3. AZELASTINE [Suspect]
     Active Substance: AZELASTINE
     Indication: HOUSE DUST ALLERGY
     Route: 055
     Dates: start: 20160222
  4. FLONASE [Concomitant]
     Active Substance: FLUTICASONE PROPIONATE

REACTIONS (9)
  - Nervous system disorder [None]
  - Head discomfort [None]
  - Hypoaesthesia [None]
  - Erythema [None]
  - Muscular weakness [None]
  - Muscle spasms [None]
  - Paranasal sinus discomfort [None]
  - Burning sensation [None]
  - Nasal discomfort [None]

NARRATIVE: CASE EVENT DATE: 20160222
